FAERS Safety Report 6336562-7 (Version None)
Quarter: 2009Q3

REPORT INFORMATION
  Report Type: 
  Country: None (occurrence: None)
  Receive Date: 20090831
  Receipt Date: 20090831
  Transmission Date: 20100115
  Serious: Yes (Life-Threatening)
  Sender: FDA-Public Use
  Company Number: None

PATIENT
  Age: 31 Year
  Sex: Male
  Weight: 95.2554 kg

DRUGS (1)
  1. AMPHETIMINE SALTS TABLETS 20MG TARGET GENERIC [Suspect]
     Indication: ATTENTION DEFICIT/HYPERACTIVITY DISORDER
     Dosage: 1 TAB 3 TIMES A DAY AS NEEDED 3X PO N/A
     Route: 048
     Dates: start: 20090715, end: 20090827

REACTIONS (17)
  - AGGRESSION [None]
  - ANXIETY [None]
  - ASTHMA [None]
  - CONSTIPATION [None]
  - DEHYDRATION [None]
  - DRY EYE [None]
  - DRY MOUTH [None]
  - HEADACHE [None]
  - INSOMNIA [None]
  - IRRITABILITY [None]
  - MANIA [None]
  - MUSCLE SPASMS [None]
  - MYALGIA [None]
  - PALPITATIONS [None]
  - PRODUCT SUBSTITUTION ISSUE [None]
  - RESPIRATORY RATE INCREASED [None]
  - TACHYPHRENIA [None]
